FAERS Safety Report 6676757-6 (Version None)
Quarter: 2010Q1

REPORT INFORMATION
  Report Type: 
  Country: None (occurrence: None)
  Receive Date: 20100331
  Receipt Date: 20090616
  Transmission Date: 20100710
  Serious: No
  Sender: FDA-Public Use
  Company Number: 200900536

PATIENT
  Age: 56 Year
  Sex: Female
  Weight: 58.9676 kg

DRUGS (1)
  1. ZICAM COLD REMEDY NASAL GEL [Suspect]
     Dosage: AS DIRECTED - 2 WEEKS
     Dates: start: 20090301, end: 20090401

REACTIONS (2)
  - AGEUSIA [None]
  - ANOSMIA [None]
